FAERS Safety Report 23749102 (Version 2)
Quarter: 2024Q2

REPORT INFORMATION
  Report Type: Report from Study
  Country: AT (occurrence: AT)
  Receive Date: 20240416
  Receipt Date: 20240612
  Transmission Date: 20240716
  Serious: Yes (Other)
  Sender: FDA-Public Use
  Company Number: AT-PFM-2024-01127

PATIENT
  Age: 75 Year
  Sex: Male

DRUGS (14)
  1. ENCORAFENIB [Suspect]
     Active Substance: ENCORAFENIB
     Indication: Malignant melanoma
     Dosage: 450 MG, QD (1/DAY)
     Route: 048
     Dates: start: 20200625
  2. BINIMETINIB [Suspect]
     Active Substance: BINIMETINIB
     Indication: Malignant melanoma
     Dosage: 45 MG, BID (2/DAY)
     Route: 048
     Dates: start: 20200625
  3. BINIMETINIB [Suspect]
     Active Substance: BINIMETINIB
     Dosage: 30 MG, BID (2/DAY)
     Route: 065
     Dates: start: 20201212
  4. METHYLPREDNISOLONE [Concomitant]
     Active Substance: METHYLPREDNISOLONE
     Dosage: UNK
     Route: 065
     Dates: start: 20200109, end: 20200709
  5. METFORMIN [Concomitant]
     Active Substance: METFORMIN HYDROCHLORIDE
     Dosage: UNK
     Route: 065
  6. CANDESARTAN [Concomitant]
     Active Substance: CANDESARTAN
     Dosage: UNK
     Route: 065
  7. GINKGO [Concomitant]
     Active Substance: GINKGO
     Indication: Prophylaxis
     Dosage: UNK
     Route: 065
  8. VITAMINS WITH MINERALS [Concomitant]
     Active Substance: MINERALS\VITAMINS
     Dosage: UNK
     Route: 065
     Dates: start: 20200109, end: 20200709
  9. PANTOPRAZOLE SODIUM [Concomitant]
     Active Substance: PANTOPRAZOLE SODIUM
     Dosage: UNK
     Route: 065
     Dates: start: 20200109, end: 20200709
  10. ASPIRIN [Concomitant]
     Active Substance: ASPIRIN
     Indication: Cerebrovascular accident
     Dosage: UNK
     Route: 065
     Dates: start: 20200916
  11. SIMVASTATIN [Concomitant]
     Active Substance: SIMVASTATIN
     Indication: Cerebrovascular accident
     Dosage: UNK
     Route: 065
     Dates: start: 20200916
  12. SERENOA REPENS WHOLE [Concomitant]
     Active Substance: SERENOA REPENS WHOLE
     Dosage: UNK
     Route: 065
  13. SYNJARDY [Concomitant]
     Active Substance: EMPAGLIFLOZIN\METFORMIN HYDROCHLORIDE
     Dosage: UNK
     Route: 065
     Dates: start: 20230217
  14. COMIRNATY [Concomitant]
     Indication: COVID-19 immunisation
     Dosage: DOSE NUMBER UNKNOWN, SINGLE
     Route: 065
     Dates: start: 20231023, end: 20231023

REACTIONS (2)
  - Second primary malignancy [Recovered/Resolved]
  - Basal cell carcinoma [Recovered/Resolved]

NARRATIVE: CASE EVENT DATE: 20230428
